FAERS Safety Report 12924828 (Version 2)
Quarter: 2016Q4

REPORT INFORMATION
  Report Type: Spontaneous
  Country: US (occurrence: US)
  Receive Date: 20161108
  Receipt Date: 20161212
  Transmission Date: 20170207
  Serious: No
  Sender: FDA-Public Use
  Company Number: PHEH2016US028407

PATIENT
  Age: 52 Year
  Sex: Female
  Weight: 61.23 kg

DRUGS (1)
  1. VIVELLE-DOT [Suspect]
     Active Substance: ESTRADIOL
     Indication: ARTIFICIAL MENOPAUSE
     Dosage: 0.75 MG, Q72H
     Route: 003
     Dates: start: 20160901

REACTIONS (3)
  - Headache [Not Recovered/Not Resolved]
  - Migraine [Not Recovered/Not Resolved]
  - Feeling abnormal [Unknown]

NARRATIVE: CASE EVENT DATE: 20160901
